FAERS Safety Report 17858576 (Version 2)
Quarter: 2020Q2

REPORT INFORMATION
  Report Type: Report from Study
  Country: None (occurrence: US)
  Receive Date: 20200604
  Receipt Date: 20200605
  Transmission Date: 20200714
  Serious: No
  Sender: FDA-Public Use
  Company Number: US-US WORLDMEDS, LLC-USW201910-002074

PATIENT
  Age: 68 Year
  Sex: Female

DRUGS (5)
  1. ENTACAPONE. [Concomitant]
     Active Substance: ENTACAPONE
     Dosage: UNKNOWN
  2. APOKYN [Suspect]
     Active Substance: APOMORPHINE HYDROCHLORIDE
     Dates: start: 2019
  3. APOKYN [Suspect]
     Active Substance: APOMORPHINE HYDROCHLORIDE
     Indication: PARKINSON^S DISEASE
     Dosage: UP TO 0.14 ML UNDER THE SKIN, DO NOT EXCEED FIVE DOSES PER DAY
     Dates: start: 201806, end: 201906
  4. APOKYN [Suspect]
     Active Substance: APOMORPHINE HYDROCHLORIDE
     Dates: start: 201909
  5. SINEMET [Concomitant]
     Active Substance: CARBIDOPA\LEVODOPA
     Dosage: UNKNOWN

REACTIONS (3)
  - Syncope [Recovered/Resolved]
  - Nausea [Recovered/Resolved]
  - Therapeutic product effect variable [Unknown]

NARRATIVE: CASE EVENT DATE: 2019
